FAERS Safety Report 19796883 (Version 1)
Quarter: 2021Q3

REPORT INFORMATION
  Report Type: Spontaneous
  Country: RU (occurrence: RU)
  Receive Date: 20210907
  Receipt Date: 20210907
  Transmission Date: 20211014
  Serious: Yes (Other)
  Sender: FDA-Public Use
  Company Number: RU-ASTRAZENECA-2021A708382

PATIENT

DRUGS (9)
  1. PALBOCICLIB [Suspect]
     Active Substance: PALBOCICLIB
     Route: 048
  2. KADCYLA [Concomitant]
     Active Substance: ADO-TRASTUZUMAB EMTANSINE
  3. FASLODEX [Suspect]
     Active Substance: FULVESTRANT
     Route: 030
  4. HALAVEN [Concomitant]
     Active Substance: ERIBULIN MESYLATE
  5. ZOLADEX [Suspect]
     Active Substance: GOSERELIN ACETATE
     Route: 058
  6. PALBOCICLIB [Suspect]
     Active Substance: PALBOCICLIB
     Route: 048
  7. DOCETAXEL. [Concomitant]
     Active Substance: DOCETAXEL
  8. FASLODEX [Suspect]
     Active Substance: FULVESTRANT
     Route: 030
  9. LAPATINIB [Concomitant]
     Active Substance: LAPATINIB

REACTIONS (9)
  - Retroperitoneal lymphadenopathy [Unknown]
  - Metastasis [Unknown]
  - Lymphadenopathy [Unknown]
  - Chills [Unknown]
  - Asthenia [Unknown]
  - Renal disorder [Unknown]
  - Triple negative breast cancer [Unknown]
  - Drug ineffective [Unknown]
  - Nausea [Unknown]
